FAERS Safety Report 4455479-6 (Version None)
Quarter: 2004Q3

REPORT INFORMATION
  Report Type: 
  Country: None (occurrence: None)
  Receive Date: 20040917
  Receipt Date: 20040812
  Transmission Date: 20050211
  Serious: Yes (Other)
  Sender: FDA-Public Use
  Company Number: JP_040804262

PATIENT
  Age: 56 Year
  Sex: Female

DRUGS (3)
  1. ONCOVIN [Suspect]
     Indication: UTERINE CANCER
     Dosage: 1 MG OTHER
     Route: 050
     Dates: start: 20030227, end: 20030227
  2. MITOMYCIN-C BULK POWDER [Concomitant]
  3. BRIPLATIN (CISPLATIN PHARMACIA) [Concomitant]

REACTIONS (6)
  - ABDOMINAL PAIN LOWER [None]
  - BLADDER DISORDER [None]
  - BLADDER NECROSIS [None]
  - HAEMATURIA [None]
  - HYPERTROPHY [None]
  - NAUSEA [None]
